FAERS Safety Report 9316204 (Version 1)
Quarter: 2013Q2

REPORT INFORMATION
  Report Type: Spontaneous
  Country: GB (occurrence: None)
  Receive Date: 20130521
  Receipt Date: 20130521
  Transmission Date: 20140414
  Serious: Yes (Hospitalization)
  Sender: FDA-Public Use
  Company Number: AUR-APL-2013-03943

PATIENT
  Age: 66 Year
  Sex: Female
  Weight: 113 kg

DRUGS (10)
  1. GABAPENTIN (GABAPENTIN) [Suspect]
     Indication: ANALGESIC THERAPY
     Route: 048
     Dates: start: 20130416, end: 20130418
  2. GABAPENTIN (GABAPENTIN) [Suspect]
     Indication: JOINT SURGERY
     Route: 048
     Dates: start: 20130416, end: 20130418
  3. BENDROFLUMETHIAZIDE (BENDROFLUMETHIAZIDE) [Concomitant]
  4. BISOPROLOL (BISOPROLOL) [Concomitant]
  5. DABIGATRAN (DABIGATRAN) (DABIGA TRAN) [Concomitant]
  6. LISINOPRIL (LISINOPRIL) [Concomitant]
  7. OMEPRAZOLE (OMEPRAZOLE) [Concomitant]
  8. PARACETAMOL (PARACETAMOL) [Concomitant]
  9. TRAMADOL (TRAMADOL) [Concomitant]
  10. ZOMORPH (MORPHINE SULFATE) [Concomitant]

REACTIONS (1)
  - Renal impairment [None]
